FAERS Safety Report 10557374 (Version 2)
Quarter: 2014Q4

REPORT INFORMATION
  Report Type: Spontaneous
  Country: JP (occurrence: JP)
  Receive Date: 20141031
  Receipt Date: 20141219
  Transmission Date: 20150529
  Serious: No
  Sender: FDA-Public Use
  Company Number: JP-ELI_LILLY_AND_COMPANY-JP201410010985

PATIENT
  Age: 28 Year
  Sex: Female

DRUGS (12)
  1. RISPERIDONE. [Concomitant]
     Active Substance: RISPERIDONE
     Indication: SCHIZOPHRENIA, DISORGANISED TYPE
     Dosage: 6 MG, QD
     Route: 048
  2. ARIPIPRAZOLE. [Concomitant]
     Active Substance: ARIPIPRAZOLE
     Indication: SCHIZOPHRENIA, DISORGANISED TYPE
     Dosage: 18 MG, QD
     Route: 048
  3. PALIPERIDONE [Concomitant]
     Active Substance: PALIPERIDONE
     Indication: SCHIZOPHRENIA, DISORGANISED TYPE
     Dosage: 6 MG, QD
     Route: 048
  4. PALIPERIDONE [Concomitant]
     Active Substance: PALIPERIDONE
     Dosage: 9 MG, QD
     Route: 048
  5. BLONANSERIN [Concomitant]
     Active Substance: BLONANSERIN
     Indication: SCHIZOPHRENIA, DISORGANISED TYPE
     Dosage: 12 MG, QD
     Route: 048
  6. QUETIAPINE [Concomitant]
     Active Substance: QUETIAPINE
     Indication: SCHIZOPHRENIA, DISORGANISED TYPE
     Dosage: UNK
     Route: 048
  7. ZYPREXA [Suspect]
     Active Substance: OLANZAPINE
     Dosage: 20 MG, QD
     Route: 048
  8. CLOZAPINE. [Suspect]
     Active Substance: CLOZAPINE
     Dosage: 100 MG, QD
     Route: 048
  9. ZYPREXA [Suspect]
     Active Substance: OLANZAPINE
     Indication: SCHIZOPHRENIA, DISORGANISED TYPE
     Dosage: 30 MG, QD
     Route: 048
  10. ZYPREXA [Suspect]
     Active Substance: OLANZAPINE
     Dosage: 5 MG, QD
     Route: 048
  11. CLOZAPINE. [Suspect]
     Active Substance: CLOZAPINE
     Indication: SCHIZOPHRENIA, DISORGANISED TYPE
     Dosage: 12.5 MG, QD
     Route: 048
  12. CLOZAPINE. [Suspect]
     Active Substance: CLOZAPINE
     Dosage: 75 MG, QD
     Route: 048

REACTIONS (7)
  - Torticollis [Recovering/Resolving]
  - Petechiae [Unknown]
  - Pyrexia [Unknown]
  - White blood cell count decreased [Unknown]
  - Prescribed overdose [Unknown]
  - Schizophrenia [Unknown]
  - Thrombocytopenia [Recovered/Resolved]
